FAERS Safety Report 9134012 (Version 1)
Quarter: 2013Q1

REPORT INFORMATION
  Report Type: Spontaneous
  Country: US (occurrence: US)
  Receive Date: 20130304
  Receipt Date: 20130304
  Transmission Date: 20140127
  Serious: No
  Sender: FDA-Public Use
  Company Number: US-009507513-1302USA013669

PATIENT
  Sex: Female

DRUGS (6)
  1. ZOCOR [Suspect]
     Indication: HYPERCHOLESTEROLAEMIA
     Dosage: 20 MG,QOD, BY MOUTH
     Dates: start: 2008
  2. ZETIA [Suspect]
     Indication: HYPERCHOLESTEROLAEMIA
     Dosage: UNK, QOD
     Dates: start: 2008
  3. LIPITOR [Suspect]
  4. CRESTOR [Suspect]
  5. LISINOPRIL [Concomitant]
  6. OXYBUTYNIN [Concomitant]

REACTIONS (2)
  - Renal impairment [Unknown]
  - Pain in extremity [Unknown]
